FAERS Safety Report 18660029 (Version 1)
Quarter: 2020Q4

REPORT INFORMATION
  Report Type: Spontaneous
  Country: US (occurrence: US)
  Receive Date: 20201223
  Receipt Date: 20201223
  Transmission Date: 20210114
  Serious: No
  Sender: FDA-Public Use
  Company Number: None

PATIENT
  Age: 72 Year
  Sex: Male
  Weight: 104 kg

DRUGS (1)
  1. LOSARTAN (LOSARTAN 50MG TAB) [Suspect]
     Active Substance: LOSARTAN
     Indication: HYPERTENSION
     Route: 048
     Dates: start: 20190404, end: 20201009

REACTIONS (1)
  - Angioedema [None]

NARRATIVE: CASE EVENT DATE: 20201009
